FAERS Safety Report 8602638-4 (Version None)
Quarter: 2012Q3

REPORT INFORMATION
  Report Type: 
  Country: None (occurrence: None)
  Receive Date: 20120423
  Receipt Date: 20090428
  Transmission Date: 20120928
  Serious: Yes (Other)
  Sender: FDA-Public Use
  Company Number: PHEH2009US04142

PATIENT
  Age: 17 Year
  Sex: Male

DRUGS (2)
  1. HUMAN GROWTH HORMONE, RECOMBINANT (SOMATROPIN) [Concomitant]
  2. FEMARA [Suspect]

REACTIONS (2)
  - BONE PAIN [None]
  - MYALGIA [None]
